FAERS Safety Report 24789411 (Version 1)
Quarter: 2024Q4

REPORT INFORMATION
  Report Type: Spontaneous
  Country: US (occurrence: None)
  Receive Date: 20241229
  Receipt Date: 20241229
  Transmission Date: 20250114
  Serious: Yes (Life-Threatening, Hospitalization, Disabling)
  Sender: Public
  Company Number: None

PATIENT
  Age: 62 Year
  Sex: Female
  Weight: 72 kg

DRUGS (4)
  1. LORAZEPAM [Suspect]
     Active Substance: LORAZEPAM
     Dates: start: 20220201, end: 20230630
  2. Sleep Apnea Machine [Concomitant]
  3. UNSPECIFIED INGREDIENT [Concomitant]
     Active Substance: UNSPECIFIED INGREDIENT
  4. ARMOUR THYROID [Concomitant]
     Active Substance: THYROID, PORCINE

REACTIONS (6)
  - Anxiety [None]
  - Depression [None]
  - Suicide attempt [None]
  - Intentional overdose [None]
  - Drug withdrawal syndrome [None]
  - Product prescribing error [None]

NARRATIVE: CASE EVENT DATE: 20241225
